FAERS Safety Report 6717388-9 (Version None)
Quarter: 2010Q2

REPORT INFORMATION
  Report Type: 
  Country: None (occurrence: None)
  Receive Date: 20100510
  Receipt Date: 20100430
  Transmission Date: 20101027
  Serious: Yes (Other)
  Sender: FDA-Public Use
  Company Number: HQWYE692911OCT04

PATIENT
  Sex: Female

DRUGS (3)
  1. PREMPRO [Suspect]
     Indication: HORMONE REPLACEMENT THERAPY
     Dosage: UNKNOWN
     Route: 048
     Dates: start: 19890101
  2. PROVERA [Suspect]
     Dosage: UNKNOWN
     Route: 048
     Dates: start: 19890101
  3. PREMARIN [Suspect]
     Dosage: UNKNOWN
     Route: 048
     Dates: start: 19890101

REACTIONS (6)
  - BREAST CANCER METASTATIC [None]
  - DIVERTICULITIS [None]
  - METASTASES TO BONE [None]
  - METASTASES TO CHEST WALL [None]
  - METASTASES TO LIVER [None]
  - METASTASES TO LUNG [None]
